FAERS Safety Report 9372259 (Version 1)
Quarter: 2013Q2

REPORT INFORMATION
  Report Type: Report from Study
  Country: DE (occurrence: DE)
  Receive Date: 20130627
  Receipt Date: 20130627
  Transmission Date: 20140414
  Serious: Yes (Hospitalization)
  Sender: FDA-Public Use
  Company Number: DE-ROCHE-1240024

PATIENT
  Sex: Male
  Weight: 70 kg

DRUGS (6)
  1. PEG-INTERFERON ALFA 2A [Suspect]
     Indication: CHRONIC HEPATITIS C
     Route: 058
     Dates: start: 20090420
  2. RIBAVIRIN [Suspect]
     Indication: CHRONIC HEPATITIS C
     Route: 048
     Dates: start: 20090420
  3. FENTANYL [Suspect]
     Indication: PRODUCT USED FOR UNKNOWN INDICATION
     Route: 065
     Dates: start: 20090803, end: 20090814
  4. CITALOPRAM [Concomitant]
     Indication: DEPRESSION
     Route: 048
     Dates: start: 20090714
  5. CITALOPRAM [Concomitant]
     Route: 048
     Dates: start: 20090504
  6. AMOXYCILLIN [Concomitant]
     Route: 048
     Dates: start: 20090804

REACTIONS (2)
  - Intercostal neuralgia [Unknown]
  - Toxicity to various agents [Recovered/Resolved]
